FAERS Safety Report 23197625 (Version 10)
Quarter: 2024Q2

REPORT INFORMATION
  Report Type: Report from Study
  Country: CH (occurrence: CH)
  Receive Date: 20231117
  Receipt Date: 20240620
  Transmission Date: 20240716
  Serious: Yes (Hospitalization, Other)
  Sender: FDA-Public Use
  Company Number: CH-PFM-2023-06437

PATIENT
  Sex: Male
  Weight: 88 kg

DRUGS (12)
  1. ENCORAFENIB [Suspect]
     Active Substance: ENCORAFENIB
     Indication: Colorectal cancer
     Dosage: 300 MG
     Route: 048
     Dates: start: 20230519, end: 20240317
  2. CETUXIMAB [Suspect]
     Active Substance: CETUXIMAB
     Indication: Colorectal cancer
     Dosage: 250 MG/M2, WEEKLY
     Route: 042
     Dates: start: 20230519
  3. CETUXIMAB [Suspect]
     Active Substance: CETUXIMAB
     Dosage: UNK, 2 WEEKLY DOSES
     Route: 065
     Dates: start: 20231013
  4. CETUXIMAB [Suspect]
     Active Substance: CETUXIMAB
     Dosage: UNK
     Route: 065
     Dates: start: 20231206, end: 20240313
  5. EDARBYCLOR [Concomitant]
     Active Substance: AZILSARTAN KAMEDOXOMIL\CHLORTHALIDONE
     Indication: Cardiac failure
     Dosage: 40 MG, DAILY
     Route: 048
  6. SPIRONOLACTONE [Concomitant]
     Active Substance: SPIRONOLACTONE
     Indication: Cardiac failure
     Dosage: 25 MG, DAILY
     Route: 048
  7. MEFENAMIC ACID [Concomitant]
     Active Substance: MEFENAMIC ACID
     Indication: Gout
     Dosage: 500 MG, PRN
     Route: 048
  8. CRESTOR [Concomitant]
     Active Substance: ROSUVASTATIN CALCIUM
     Indication: Cardiac failure
     Dosage: 20 MG, DAILY
     Route: 048
  9. ALLOPURINOL SODIUM [Concomitant]
     Active Substance: ALLOPURINOL SODIUM
     Indication: Renal failure
     Dosage: 100 MG, DAILY
     Route: 048
  10. IRINOTECAN [Concomitant]
     Active Substance: IRINOTECAN
     Indication: Colorectal cancer
     Dosage: 360 MG EVERY TWO WEEKS
     Route: 042
     Dates: start: 20231013
  11. TRAZODONE HYDROCHLORIDE [Concomitant]
     Active Substance: TRAZODONE HYDROCHLORIDE
     Indication: Depression
     Dosage: 50 MG, DAILY
     Route: 048
     Dates: start: 20230201
  12. BISOPROLOL FUMARATE [Concomitant]
     Active Substance: BISOPROLOL FUMARATE
     Indication: Cardiac failure
     Dosage: 5 MG, DAILY
     Route: 048
     Dates: start: 20231106

REACTIONS (4)
  - Bacteraemia [Recovered/Resolved]
  - Pneumonia klebsiella [Unknown]
  - Endocarditis [Unknown]
  - Fear [Unknown]

NARRATIVE: CASE EVENT DATE: 20231103
